FAERS Safety Report 17023242 (Version 2)
Quarter: 2019Q4

REPORT INFORMATION
  Report Type: Report from Study
  Country: US (occurrence: US)
  Receive Date: 20191112
  Receipt Date: 20191119
  Transmission Date: 20200122
  Serious: Yes (Death, Hospitalization)
  Sender: FDA-Public Use
  Company Number: US-EXELIXIS-CABO-19025063

PATIENT
  Sex: Female

DRUGS (6)
  1. VIREAD [Concomitant]
     Active Substance: TENOFOVIR DISOPROXIL FUMARATE
     Dosage: UNK
  2. CABOMETYX [Suspect]
     Active Substance: CABOZANTINIB S-MALATE
     Indication: HEPATIC CANCER
     Dosage: 40 MG, QD
     Route: 048
     Dates: start: 20191010, end: 201910
  3. HYDRALAZINE HCL [Concomitant]
     Active Substance: HYDRALAZINE HYDROCHLORIDE
     Dosage: UNK
  4. SIMVASTATIN. [Concomitant]
     Active Substance: SIMVASTATIN
     Dosage: UNK
  5. ALBUTEROL SULFATE. [Concomitant]
     Active Substance: ALBUTEROL SULFATE
     Dosage: UNK
  6. COZAAR [Concomitant]
     Active Substance: LOSARTAN POTASSIUM
     Dosage: UNK

REACTIONS (1)
  - Hepatic failure [Fatal]
